FAERS Safety Report 9336167 (Version 3)
Quarter: 2013Q4

REPORT INFORMATION
  Report Type: Spontaneous
  Country: US (occurrence: US)
  Receive Date: 20130607
  Receipt Date: 20131022
  Transmission Date: 20140711
  Serious: No
  Sender: FDA-Public Use
  Company Number: US-BIOGENIDEC-2013BI050747

PATIENT
  Age: 69 Year
  Sex: Male

DRUGS (1)
  1. TYSABRI [Suspect]
     Indication: CROHN^S DISEASE
     Route: 042
     Dates: start: 201207, end: 20130205

REACTIONS (12)
  - Abdominal pain lower [Unknown]
  - Diarrhoea [Unknown]
  - Drug ineffective [Unknown]
  - Fatigue [Recovered/Resolved]
  - Biliary tract disorder [Recovered/Resolved]
  - Hand fracture [Recovered/Resolved]
  - Blood potassium decreased [Recovered/Resolved]
  - Vitamin B12 decreased [Recovered/Resolved]
  - Vitamin D decreased [Recovered/Resolved]
  - Hypothyroidism [Recovered/Resolved]
  - Multiple sclerosis [Unknown]
  - Asthenia [Unknown]
